FAERS Safety Report 9849251 (Version 1)
Quarter: 2014Q1

REPORT INFORMATION
  Report Type: Spontaneous
  Country: US (occurrence: None)
  Receive Date: 20140127
  Receipt Date: 20140127
  Transmission Date: 20141002
  Serious: Yes (Disabling)
  Sender: FDA-Public Use
  Company Number: None

PATIENT
  Age: 54 Year
  Sex: Male
  Weight: 165 kg

DRUGS (1)
  1. CIPRO [Suspect]
     Indication: PROSTATITIS
     Route: 048
     Dates: start: 20121212, end: 20121212

REACTIONS (44)
  - Muscular weakness [None]
  - Jaw disorder [None]
  - Feeling abnormal [None]
  - Fatigue [None]
  - Arthralgia [None]
  - Tendon pain [None]
  - Headache [None]
  - Nervous system disorder [None]
  - Disturbance in attention [None]
  - Intracranial pressure increased [None]
  - Vertigo [None]
  - Sinus headache [None]
  - Ear pain [None]
  - Asthenopia [None]
  - Photopsia [None]
  - Vitreous floaters [None]
  - Tinnitus [None]
  - Dysgeusia [None]
  - Decreased appetite [None]
  - Constipation [None]
  - Myasthenic syndrome [None]
  - Weight increased [None]
  - Muscle atrophy [None]
  - Dry skin [None]
  - Dry eye [None]
  - Temperature intolerance [None]
  - Raynaud^s phenomenon [None]
  - Alopecia [None]
  - Tremor [None]
  - Muscle spasms [None]
  - Back pain [None]
  - Back pain [None]
  - Back pain [None]
  - Local swelling [None]
  - Hypoaesthesia [None]
  - Skin exfoliation [None]
  - Paraesthesia [None]
  - Arthralgia [None]
  - Tendonitis [None]
  - Arthralgia [None]
  - Hypothyroidism [None]
  - Migraine [None]
  - Tendon pain [None]
  - Blood cholesterol increased [None]
